FAERS Safety Report 18481404 (Version 1)
Quarter: 2020Q4

REPORT INFORMATION
  Report Type: Spontaneous
  Country: US (occurrence: US)
  Receive Date: 20201109
  Receipt Date: 20201109
  Transmission Date: 20210114
  Serious: No
  Sender: FDA-Public Use
  Company Number: US-BAYER-2020-240951

PATIENT
  Age: 88 Year
  Sex: Male

DRUGS (5)
  1. MILK OF MAGNESIA CHERRY [Suspect]
     Active Substance: MAGNESIUM HYDROXIDE
     Indication: GASTROINTESTINAL DISORDER
     Dosage: 60 ML
     Route: 048
     Dates: start: 20201104, end: 20201104
  2. DULCOLAX (BISACODYL) [Suspect]
     Active Substance: BISACODYL
  3. MIRALAX [Suspect]
     Active Substance: POLYETHYLENE GLYCOL 3350
     Dosage: UNK
  4. INSULIN [Suspect]
     Active Substance: INSULIN NOS
  5. SENOKOT [Suspect]
     Active Substance: SENNOSIDES

REACTIONS (1)
  - Blood glucose increased [None]

NARRATIVE: CASE EVENT DATE: 20201105
